FAERS Safety Report 5379731-5 (Version None)
Quarter: 2007Q3

REPORT INFORMATION
  Report Type: 
  Country: None (occurrence: None)
  Receive Date: 20070706
  Receipt Date: 20070628
  Transmission Date: 20080115
  Serious: Yes (Hospitalization)
  Sender: FDA-Public Use
  Company Number: PHEH2007US09388

PATIENT
  Age: 82 Year
  Sex: Male

DRUGS (2)
  1. LOTREL [Suspect]
     Indication: HYPERTENSION
     Dosage: 5/10 ONCE DAILY
     Route: 048
     Dates: start: 20070616, end: 20070623
  2. GLUCOVANCE [Concomitant]
     Indication: DIABETES MELLITUS

REACTIONS (6)
  - APHASIA [None]
  - CEREBROVASCULAR ACCIDENT [None]
  - DIZZINESS [None]
  - HYPOAESTHESIA [None]
  - MUSCULAR WEAKNESS [None]
  - NAUSEA [None]
